FAERS Safety Report 9344930 (Version 2)
Quarter: 2013Q3

REPORT INFORMATION
  Report Type: Spontaneous
  Country: FR (occurrence: FR)
  Receive Date: 20130612
  Receipt Date: 20130708
  Transmission Date: 20140515
  Serious: Yes (Death, Hospitalization, Other)
  Sender: FDA-Public Use
  Company Number: FR-TEVA-411410ISR

PATIENT
  Age: 83 Year
  Sex: Female

DRUGS (10)
  1. FUROSEMIDE TEVA 40 MG [Suspect]
     Indication: HYPERTENSION
     Dosage: 80 MILLIGRAM DAILY; ON MORNING AND EVENING
     Dates: start: 20130529, end: 20130604
  2. FUROSEMIDE TEVA 40 MG [Suspect]
     Indication: CARDIAC FAILURE
  3. MEDIATENSYL [Concomitant]
  4. SPIRONOLACTONE [Concomitant]
     Dosage: 1 DOSAGE FORMS DAILY;
  5. SPIRONOLACTONE [Concomitant]
  6. SPIRONOLACTONE [Concomitant]
  7. DIFFU K [Concomitant]
  8. IMPORTAL [Concomitant]
  9. MIANSERINE [Concomitant]
  10. TRIMEBUTINE [Concomitant]

REACTIONS (13)
  - Ventricular fibrillation [Fatal]
  - Myocardial infarction [Fatal]
  - Dehydration [Fatal]
  - Peripheral ischaemia [Fatal]
  - Arrhythmia [Not Recovered/Not Resolved]
  - Cardiac failure [Unknown]
  - Oedema peripheral [Unknown]
  - General physical health deterioration [Unknown]
  - Asthenia [Unknown]
  - Renal failure acute [Unknown]
  - Pain in extremity [Not Recovered/Not Resolved]
  - Fatigue [Unknown]
  - Sleep disorder [Unknown]
